FAERS Safety Report 19394868 (Version 2)
Quarter: 2022Q2

REPORT INFORMATION
  Report Type: Spontaneous
  Country: US (occurrence: US)
  Receive Date: 20210609
  Receipt Date: 20220414
  Transmission Date: 20220720
  Serious: No
  Sender: FDA-Public Use
  Company Number: US-TOPROL-2021000108

PATIENT
  Age: 73 Year
  Sex: Female

DRUGS (33)
  1. METOPROLOL [Suspect]
     Active Substance: METOPROLOL
     Indication: Product used for unknown indication
     Route: 065
  2. BISOPROLOL [Concomitant]
     Active Substance: BISOPROLOL
     Indication: Cardiac failure
     Dosage: FREQUENCY: Q PM
     Route: 065
     Dates: start: 20201006
  3. Clopadogrel [Concomitant]
     Indication: Acute myocardial infarction
     Dosage: DAILY AM, TAKE WITH ASA
     Route: 065
     Dates: start: 20201006
  4. ASPIRIN [Concomitant]
     Active Substance: ASPIRIN
     Indication: Lacunar stroke
     Dosage: ONCE EACH AM WITH CLOPIDOGREL
     Route: 065
     Dates: start: 1998
  5. GABAPENTIN [Concomitant]
     Active Substance: GABAPENTIN
     Indication: Neuropathy peripheral
     Dosage: AS NEEDED
     Dates: start: 20201123
  6. Ketaconazole 2% [Concomitant]
     Indication: Skin exfoliation
     Dosage: AS DIRECTED
     Route: 065
  7. LYRICA [Concomitant]
     Active Substance: PREGABALIN
     Indication: Paraesthesia
     Route: 065
     Dates: start: 201211
  8. BIOTIN [Concomitant]
     Active Substance: BIOTIN
     Indication: Hair disorder
     Route: 065
     Dates: start: 202101
  9. Calcium Carbonate Antacid [Concomitant]
     Indication: Dyspepsia
     Dosage: 2 AS NEEDED
     Route: 065
     Dates: start: 20201006
  10. Calcium, Magnesium and Zinc [Concomitant]
     Indication: Osteopenia
     Route: 065
     Dates: start: 1990
  11. CETIRIZINE [Concomitant]
     Active Substance: CETIRIZINE HYDROCHLORIDE
     Indication: Hypersensitivity
     Dosage: 1 DAILY Q AM WITH ADDITION OF MONTELUKAST, OR TWICE DAILY IF NEEDED
     Route: 065
     Dates: start: 2002
  12. MONTELUKAST [Concomitant]
     Active Substance: MONTELUKAST SODIUM
     Indication: Chronic respiratory disease
     Dosage: ONCE DAILY PM
     Route: 065
  13. CINNAMON [Concomitant]
     Active Substance: CINNAMON
     Indication: Carbohydrate metabolism disorder
     Route: 065
  14. COENZYME Q10 [Concomitant]
     Active Substance: DIETARY SUPPLEMENT\UBIDECARENONE
     Indication: Age-related macular degeneration
     Dosage: PREVIOUSLY TAKEN WITH AREDS
     Route: 065
     Dates: start: 2016
  15. MINERALS\VITAMINS [Suspect]
     Active Substance: MINERALS\VITAMINS
     Indication: Age-related macular degeneration
     Dosage: ON HOLD DUE TO RESOLUTION OF SIGNS OF AMD
     Route: 065
  16. CRANBERRY CONCENTRATE [Concomitant]
     Active Substance: CRANBERRY CONCENTRATE
     Indication: Urinary tract infection
     Dosage: 2 CAPSULES THREE TIMES DAILY
     Route: 065
     Dates: start: 2018
  17. FISH OIL [Concomitant]
     Active Substance: FISH OIL
     Indication: Product used for unknown indication
     Route: 065
     Dates: start: 1988
  18. GLYCERIN SUPPOSITORY [Concomitant]
     Active Substance: GLYCERIN
     Indication: Product used for unknown indication
     Dosage: OCCASIONAL
     Route: 054
     Dates: start: 2014
  19. Guaifenisin [Concomitant]
     Indication: Chronic respiratory disease
     Dosage: ONCE OR TWICE DAILY, AS NEEDED, EXTENDED RELEASE IF AVAILABLE
     Route: 065
     Dates: start: 2007
  20. MILK OF MAGNESIA [Concomitant]
     Active Substance: MAGNESIUM HYDROXIDE
     Indication: Functional gastrointestinal disorder
     Dosage: AS DIRECTED
     Route: 065
     Dates: start: 20201023
  21. POTASSIUM CITRATE [Concomitant]
     Active Substance: POTASSIUM CITRATE
     Indication: Urinary tract disorder
     Dosage: 1 EVERY NIGHT
     Route: 065
     Dates: start: 2018
  22. HERBALS\SAW PALMETTO [Concomitant]
     Active Substance: HERBALS\SAW PALMETTO
     Indication: Alopecia
     Route: 065
     Dates: start: 2020
  23. Senior Women^s Multiple Vitamin [Concomitant]
     Indication: Product used for unknown indication
     Route: 065
  24. VITAMIN B COMPLEX [Concomitant]
     Active Substance: CYANOCOBALAMIN\DEXPANTHENOL\NIACINAMIDE\PYRIDOXINE HYDROCHLORIDE\RIBOFLAVIN 5^-PHOSPHATE SODIUM\THIA
     Indication: Oral pain
     Dosage: AT BEDTIME
     Dates: start: 2012
  25. VITAMIN D3 [Concomitant]
     Active Substance: CHOLECALCIFEROL
     Indication: Osteopenia
     Dosage: DECREASED AND NOW INCREASED DOSE AFTER LAST TABS
     Route: 065
     Dates: start: 20140301
  26. ROSUVASTATIN [Concomitant]
     Active Substance: ROSUVASTATIN
     Indication: Lipids increased
     Dosage: ONCE DAILY EVENING
     Route: 065
     Dates: start: 2018
  27. TETRACYCLINE [Concomitant]
     Active Substance: TETRACYCLINE
     Indication: Product used for unknown indication
     Dosage: AVOID IF POSSIBLE
  28. Methacarbamol 500-750 mg [Concomitant]
     Indication: Muscle spasms
     Dosage: AS NEEDED
  29. MONTELUKAST [Concomitant]
     Active Substance: MONTELUKAST SODIUM
     Indication: Hypersensitivity
     Dosage: AT BEDTIME
     Route: 065
     Dates: start: 2018
  30. NITROGLYCERIN [Concomitant]
     Active Substance: NITROGLYCERIN
     Indication: Chest pain
     Dosage: AS DIRECTED, ONE TABLET SUBLINGUALLY, EVERY 5 MINUTES. IF NO RELIF AFTER 2, TAKE 3RD AND CALL 911
     Route: 065
     Dates: start: 20201007
  31. Ondansetron Meltaway Tablets [Concomitant]
     Indication: Nausea
     Dosage: AS NEEDED
     Route: 065
  32. PANTOPRAZOLE [Concomitant]
     Active Substance: PANTOPRAZOLE
     Indication: Gastrooesophageal reflux disease
     Dosage: DOSAGE INCREASED ON 01-DEC-2020
     Route: 065
     Dates: start: 20201023
  33. Rizotriptan [Concomitant]
     Indication: Migraine
     Dosage: AS NEEDED/ MAY REPEAT X1 AFTER 2 HOURS
     Route: 065
     Dates: start: 1989

REACTIONS (2)
  - Dyspnoea [Unknown]
  - Cardiac disorder [Unknown]
